FAERS Safety Report 8305562-X (Version None)
Quarter: 2012Q2

REPORT INFORMATION
  Report Type: 
  Country: None (occurrence: None)
  Receive Date: 20120423
  Receipt Date: 20120417
  Transmission Date: 20120825
  Serious: Yes (Life-Threatening)
  Sender: FDA-Public Use
  Company Number: IT-MERCK-1204USA02236

PATIENT
  Age: 59 Year
  Sex: Male

DRUGS (2)
  1. PRIMAXIN [Suspect]
     Indication: DIVERTICULAR PERFORATION
     Route: 042
     Dates: start: 20120404, end: 20120411
  2. METRONIDAZOLE [Concomitant]
     Route: 065

REACTIONS (4)
  - LOSS OF CONSCIOUSNESS [None]
  - RENAL TUBULAR DISORDER [None]
  - GRAND MAL CONVULSION [None]
  - DYSPNOEA [None]
